FAERS Safety Report 11286970 (Version 1)
Quarter: 2015Q3

REPORT INFORMATION
  Report Type: Spontaneous
  Country: US (occurrence: US)
  Receive Date: 20150721
  Receipt Date: 20150721
  Transmission Date: 20151125
  Serious: No
  Sender: FDA-Public Use
  Company Number: US-BIOGENIDEC-2015BI097975

PATIENT
  Age: 59 Year
  Sex: Female

DRUGS (6)
  1. ASPIRIN LOW DOSE [Concomitant]
     Active Substance: ASPIRIN
     Indication: BALANCE DISORDER
  2. ALEVE [Concomitant]
     Active Substance: NAPROXEN SODIUM
     Indication: BALANCE DISORDER
  3. LIPITOR [Concomitant]
     Active Substance: ATORVASTATIN CALCIUM
     Indication: BALANCE DISORDER
  4. TECFIDERA [Suspect]
     Active Substance: DIMETHYL FUMARATE
     Indication: MULTIPLE SCLEROSIS
     Route: 048
     Dates: start: 20141212
  5. TYLENOL EXTRA STRENGTH [Concomitant]
     Active Substance: ACETAMINOPHEN
     Indication: BALANCE DISORDER
  6. CENTRUM SILVER [Concomitant]
     Active Substance: VITAMINS
     Indication: BALANCE DISORDER

REACTIONS (1)
  - Tooth infection [Unknown]
